FAERS Safety Report 4404442-X (Version None)
Quarter: 2004Q3

REPORT INFORMATION
  Report Type: 
  Country: None (occurrence: None)
  Receive Date: 20040720
  Receipt Date: 20040709
  Transmission Date: 20050211
  Serious: Yes (Hospitalization)
  Sender: FDA-Public Use
  Company Number: US-JNJFOC-20040703022

PATIENT
  Age: 52 Year
  Sex: Female
  Weight: 69.4003 kg

DRUGS (9)
  1. INFLIXIMAB(INFLIXIMAB , RECOMBINANT) LYOPHILIZED POWDER [Suspect]
     Indication: RHEUMATOID ARTHRITIS
     Dosage: 300 MG, INTRAVENOUS
     Route: 042
     Dates: start: 20020618
  2. AMITRIPTYLINE (AMITRIPTYLINE) TABLETS [Concomitant]
  3. CYANOCOBALAMINE (CYANOCOBALAMIN) [Concomitant]
  4. METHOTREXATE [Concomitant]
  5. PROZAC [Concomitant]
  6. SULFASALAZINE (SULFASALAZINE) TABLETS [Concomitant]
  7. SYTHROID (LEVOTHYROXINE SODIUM) [Concomitant]
  8. VOLTAREN [Concomitant]
  9. ACTIVELLA (OESTRANORM) [Concomitant]

REACTIONS (3)
  - CARDIAC FAILURE [None]
  - HYPOCALCAEMIA [None]
  - RESPIRATORY FAILURE [None]
